FAERS Safety Report 9174032 (Version 1)
Quarter: 2013Q1

REPORT INFORMATION
  Report Type: Spontaneous
  Country: US (occurrence: None)
  Receive Date: 20130318
  Receipt Date: 20130318
  Transmission Date: 20140127
  Serious: Yes (Other)
  Sender: FDA-Public Use
  Company Number: None

PATIENT
  Age: 51 Year
  Sex: Female
  Weight: 56.7 kg

DRUGS (1)
  1. NITROFURANTOIN [Suspect]
     Dosage: 100 MG CAPS TWICE A DAY PO
     Route: 048

REACTIONS (7)
  - Headache [None]
  - Dizziness [None]
  - Asthenia [None]
  - Fatigue [None]
  - Nausea [None]
  - Chills [None]
  - Pyrexia [None]
